FAERS Safety Report 7312434-6 (Version None)
Quarter: 2011Q1

REPORT INFORMATION
  Report Type: 
  Country: None (occurrence: None)
  Receive Date: 20110214
  Receipt Date: 20110201
  Transmission Date: 20110831
  Serious: Yes (Hospitalization)
  Sender: FDA-Public Use
  Company Number: 2011DE0033

PATIENT
  Age: 63 Year
  Sex: Male

DRUGS (2)
  1. KINERET [Suspect]
     Indication: RHEUMATOID ARTHRITIS
     Dosage: (100 MG, 1IN 1 D)
     Dates: start: 20030801, end: 20090801
  2. METHOTREXATE [Suspect]
     Indication: RHEUMATOID ARTHRITIS
     Dosage: (15 MG,1 IN 1 D)

REACTIONS (2)
  - AGRANULOCYTOSIS [None]
  - HEPATIC ENZYME INCREASED [None]
